FAERS Safety Report 17424778 (Version 2)
Quarter: 2020Q1

REPORT INFORMATION
  Report Type: Spontaneous
  Country: US (occurrence: US)
  Receive Date: 20200217
  Receipt Date: 20200306
  Transmission Date: 20200409
  Serious: No
  Sender: FDA-Public Use
  Company Number: US-AMGEN-USASP2020024475

PATIENT
  Age: 74 Year
  Sex: Female
  Weight: 54.88 kg

DRUGS (1)
  1. PROLIA [Suspect]
     Active Substance: DENOSUMAB
     Indication: PRODUCT USED FOR UNKNOWN INDICATION
     Dosage: UNK
     Route: 065
     Dates: start: 20200116

REACTIONS (4)
  - Headache [Unknown]
  - Nervousness [Unknown]
  - Nasal congestion [Unknown]
  - Night sweats [Unknown]

NARRATIVE: CASE EVENT DATE: 2020
